FAERS Safety Report 18467350 (Version 6)
Quarter: 2021Q1

REPORT INFORMATION
  Report Type: Spontaneous
  Country: US (occurrence: US)
  Receive Date: 20201105
  Receipt Date: 20210211
  Transmission Date: 20210419
  Serious: No
  Sender: FDA-Public Use
  Company Number: US-PFIZER INC-2020419102

PATIENT
  Age: 68 Year
  Sex: Male
  Weight: 90.72 kg

DRUGS (2)
  1. GENOTROPIN [Suspect]
     Active Substance: SOMATROPIN
     Indication: GROWTH HORMONE DEFICIENCY
     Dosage: 0.2 MG
     Dates: start: 2016
  2. GENOTROPIN [Suspect]
     Active Substance: SOMATROPIN
     Dosage: 0.2 MG, 1X/DAY (0.2MG INJECTION AT NIGHT)
     Dates: start: 202007

REACTIONS (6)
  - Drug dose omission by device [Unknown]
  - Product quality issue [Unknown]
  - Device issue [Unknown]
  - Device use error [Unknown]
  - Device leakage [Unknown]
  - Device information output issue [Unknown]

NARRATIVE: CASE EVENT DATE: 202010
